FAERS Safety Report 20135762 (Version 1)
Quarter: 2021Q4

REPORT INFORMATION
  Report Type: Spontaneous
  Country: US (occurrence: None)
  Receive Date: 20211201
  Receipt Date: 20211201
  Transmission Date: 20220303
  Serious: Yes (Hospitalization, Other)
  Sender: FDA-Public Use
  Company Number: None

PATIENT
  Age: 52 Year
  Sex: Female
  Weight: 64 kg

DRUGS (1)
  1. ALIROCUMAB [Suspect]
     Active Substance: ALIROCUMAB
     Indication: Product used for unknown indication
     Dates: start: 20210604, end: 20211025

REACTIONS (5)
  - Hypertensive urgency [None]
  - Chest pain [None]
  - Abdominal pain upper [None]
  - Nausea [None]
  - Presyncope [None]

NARRATIVE: CASE EVENT DATE: 20211019
